FAERS Safety Report 7392235-3 (Version None)
Quarter: 2011Q2

REPORT INFORMATION
  Report Type: 
  Country: None (occurrence: None)
  Receive Date: 20110404
  Receipt Date: 20110330
  Transmission Date: 20111010
  Serious: Yes (Other)
  Sender: FDA-Public Use
  Company Number: HR-MERCK-1103USA03848

PATIENT
  Sex: Female

DRUGS (4)
  1. TRITACE [Concomitant]
     Indication: HYPERTENSION
     Route: 048
  2. VASILIP [Concomitant]
     Indication: HYPERLIPIDAEMIA
     Route: 048
  3. JANUVIA [Suspect]
     Indication: DIABETES MELLITUS
     Route: 048
     Dates: start: 20101101, end: 20101101
  4. DIAPREL [Concomitant]
     Indication: DIABETES MELLITUS
     Route: 048

REACTIONS (5)
  - RASH [None]
  - RASH PRURITIC [None]
  - SWELLING FACE [None]
  - OEDEMA PERIPHERAL [None]
  - HEART RATE INCREASED [None]
